FAERS Safety Report 9007040 (Version 2)
Quarter: 2013Q1

REPORT INFORMATION
  Report Type: Spontaneous
  Country: US (occurrence: US)
  Receive Date: 20130110
  Receipt Date: 20130117
  Transmission Date: 20140127
  Serious: Yes (Death)
  Sender: FDA-Public Use
  Company Number: PHEH2013US000889

PATIENT
  Age: 85 Year
  Sex: Female

DRUGS (1)
  1. DIOVAN HCT [Suspect]
     Dosage: 1 DF (VALSARTAN 300 MG AND HYDROCHLOROTIAZIDE 25 MG)
     Route: 048

REACTIONS (1)
  - Death [Fatal]
